FAERS Safety Report 6594703-0 (Version None)
Quarter: 2010Q1

REPORT INFORMATION
  Report Type: 
  Country: None (occurrence: None)
  Receive Date: 20100222
  Receipt Date: 20100212
  Transmission Date: 20100710
  Serious: Yes (Other)
  Sender: FDA-Public Use
  Company Number: US-AMGEN-QUU384400

PATIENT
  Sex: Male

DRUGS (4)
  1. ENBREL [Suspect]
     Indication: PSORIASIS
     Route: 058
     Dates: start: 20040701, end: 20100105
  2. TOPROL-XL [Concomitant]
  3. ZETIA [Concomitant]
  4. ASPIRIN [Concomitant]

REACTIONS (3)
  - CELLULITIS [None]
  - FIXED ERUPTION [None]
  - PSORIASIS [None]
